FAERS Safety Report 4282308-6 (Version None)
Quarter: 2004Q1

REPORT INFORMATION
  Report Type: 
  Country: None (occurrence: None)
  Receive Date: 20040112
  Receipt Date: 20030923
  Transmission Date: 20041129
  Serious: Yes (Other)
  Sender: FDA-Public Use
  Company Number: 343851

PATIENT
  Age: 41 Year
  Sex: Male
  Weight: 61.2 kg

DRUGS (4)
  1. FUZEON [Suspect]
     Indication: HIV TEST POSITIVE
     Dosage: 90 MG 2 PER DAY SUBCUTANTEOUS
     Route: 058
     Dates: start: 20030412, end: 20030412
  2. VIDEX [Suspect]
     Indication: HIV TEST POSITIVE
     Dosage: ORAL
     Route: 048
     Dates: start: 20010126, end: 20030715
  3. ZIAGEN [Concomitant]
  4. EPIVIR [Concomitant]

REACTIONS (4)
  - DRUG INTERACTION [None]
  - INJECTION SITE REACTION [None]
  - NODULE [None]
  - PANCREATITIS [None]
